FAERS Safety Report 22150304 (Version 3)
Quarter: 2023Q2

REPORT INFORMATION
  Report Type: Spontaneous
  Country: FR (occurrence: FR)
  Receive Date: 20230329
  Receipt Date: 20230407
  Transmission Date: 20230722
  Serious: Yes (Disabling, Other)
  Sender: FDA-Public Use
  Company Number: FR-SANOFI-01542746

PATIENT
  Age: 16 Year
  Sex: Male
  Weight: 30 kg

DRUGS (1)
  1. NASACORT [Suspect]
     Active Substance: TRIAMCINOLONE ACETONIDE
     Indication: Rhinitis allergic
     Dosage: 1 SPRAY PER NOSTRIL
     Route: 045
     Dates: start: 202104, end: 202301

REACTIONS (3)
  - Growth failure [Unknown]
  - Growth retardation [Unknown]
  - Loss of personal independence in daily activities [Unknown]

NARRATIVE: CASE EVENT DATE: 20220101
